FAERS Safety Report 13583519 (Version 1)
Quarter: 2017Q2

REPORT INFORMATION
  Report Type: Other
  Country: US (occurrence: US)
  Receive Date: 20170526
  Receipt Date: 20170526
  Transmission Date: 20170830
  Serious: Yes (Hospitalization)
  Sender: FDA-Public Use
  Company Number: US-ORCHID HEALTHCARE-2021261

PATIENT
  Age: 65 Year
  Sex: Female

DRUGS (1)
  1. OLANZAPINE. [Suspect]
     Active Substance: OLANZAPINE
     Indication: SCHIZOPHRENIA
     Route: 065

REACTIONS (5)
  - Supraventricular extrasystoles [Recovering/Resolving]
  - Sinus bradycardia [Recovering/Resolving]
  - Hypoglycaemia [Recovering/Resolving]
  - Sinus arrest [Recovering/Resolving]
  - Hypothermia [Recovering/Resolving]
